FAERS Safety Report 23735465 (Version 1)
Quarter: 2024Q2

REPORT INFORMATION
  Report Type: Other
  Country: CL (occurrence: None)
  Receive Date: 20240412
  Receipt Date: 20240412
  Transmission Date: 20240716
  Serious: Yes (Other)
  Sender: FDA-Public Use
  Company Number: CL-ROCHE-3534333

PATIENT
  Age: 64 Year
  Sex: Male
  Weight: 58 kg

DRUGS (3)
  1. TECENTRIQ [Suspect]
     Active Substance: ATEZOLIZUMAB
     Indication: Lung neoplasm malignant
     Route: 041
     Dates: start: 20231011
  2. CARBOPLATIN [Concomitant]
     Active Substance: CARBOPLATIN
     Indication: Lung neoplasm malignant
     Route: 042
     Dates: start: 20230830
  3. ETOPOSIDE [Concomitant]
     Active Substance: ETOPOSIDE
     Indication: Lung neoplasm malignant
     Route: 042
     Dates: start: 20230830

REACTIONS (21)
  - Metastases to central nervous system [Unknown]
  - Intracranial mass [Unknown]
  - Gait disturbance [Unknown]
  - Speech disorder [Unknown]
  - Head injury [Unknown]
  - Seizure [Unknown]
  - Dysphagia [Unknown]
  - Deafness neurosensory [Unknown]
  - Metastatic neoplasm [Unknown]
  - Tumour necrosis [Unknown]
  - Haemorrhage [Unknown]
  - Dysphagia [Unknown]
  - COVID-19 [Unknown]
  - Thyroid mass [Unknown]
  - Diverticulum intestinal [Unknown]
  - Hiatus hernia [Unknown]
  - Renal cyst [Unknown]
  - Aortic arteriosclerosis [Unknown]
  - Rib fracture [Unknown]
  - Dysarthria [Unknown]
  - Dysphonia [Unknown]

NARRATIVE: CASE EVENT DATE: 20231229
